FAERS Safety Report 13814763 (Version 2)
Quarter: 2018Q3

REPORT INFORMATION
  Report Type: Spontaneous
  Country: US (occurrence: US)
  Receive Date: 20170731
  Receipt Date: 20180921
  Transmission Date: 20181010
  Serious: No
  Sender: FDA-Public Use
  Company Number: US-IGSA-IG004386

PATIENT
  Age: 73 Year
  Sex: Female

DRUGS (1)
  1. FLEBOGAMMA [Suspect]
     Active Substance: HUMAN IMMUNOGLOBULIN G
     Dosage: UNK
     Route: 042

REACTIONS (3)
  - Hypoventilation [Unknown]
  - Hyperhidrosis [Unknown]
  - Hypotension [Unknown]

NARRATIVE: CASE EVENT DATE: 2016
